FAERS Safety Report 6285109-2 (Version None)
Quarter: 2009Q3

REPORT INFORMATION
  Report Type: 
  Country: None (occurrence: None)
  Receive Date: 20090727
  Receipt Date: 20090720
  Transmission Date: 20100115
  Serious: Yes (Death)
  Sender: FDA-Public Use
  Company Number: GB-WYE-H09820809

PATIENT
  Sex: Female
  Weight: 68 kg

DRUGS (5)
  1. CMC-544 [Suspect]
     Indication: MANTLE CELL LYMPHOMA
     Route: 042
     Dates: start: 20090522, end: 20090620
  2. PERINDOPRIL [Concomitant]
     Indication: HYPERTENSION
     Dosage: NOT PROVIDED
     Route: 065
     Dates: start: 19990101, end: 20090620
  3. ACYCLOVIR [Concomitant]
     Indication: PROPHYLAXIS
     Dosage: NOT PROVIDED
     Route: 065
     Dates: start: 20080101, end: 20090620
  4. RITUXIMAB [Concomitant]
     Indication: MANTLE CELL LYMPHOMA
     Route: 042
     Dates: start: 20090522, end: 20090620
  5. ALLOPURINOL [Concomitant]
     Indication: PROPHYLAXIS
     Dosage: NOT PROVIDED
     Route: 065
     Dates: start: 20090101, end: 20090620

REACTIONS (16)
  - ACTIVATED PARTIAL THROMBOPLASTIN TIME PROLONGED [None]
  - BLOOD CREATININE INCREASED [None]
  - BLOOD POTASSIUM INCREASED [None]
  - CARDIAC ARREST [None]
  - DIARRHOEA [None]
  - DISEASE PROGRESSION [None]
  - DYSPNOEA [None]
  - GASTROINTESTINAL PERFORATION [None]
  - INTERNATIONAL NORMALISED RATIO INCREASED [None]
  - INTESTINAL ISCHAEMIA [None]
  - METABOLIC ACIDOSIS [None]
  - NON-HODGKIN'S LYMPHOMA [None]
  - PROTHROMBIN TIME PROLONGED [None]
  - SEPSIS [None]
  - SHOCK [None]
  - VOMITING [None]
